FAERS Safety Report 9022552 (Version 1)
Quarter: 2013Q1

REPORT INFORMATION
  Report Type: Spontaneous
  Country: US (occurrence: US)
  Receive Date: 20130118
  Receipt Date: 20130118
  Transmission Date: 20140127
  Serious: No
  Sender: FDA-Public Use
  Company Number: US-GLAXOSMITHKLINE-A0973283A

PATIENT
  Age: 88 Year
  Sex: Male

DRUGS (11)
  1. PROMACTA [Suspect]
     Indication: PRODUCT USED FOR UNKNOWN INDICATION
     Dosage: 25MG PER DAY
     Route: 048
     Dates: start: 20120330
  2. LIPITOR [Concomitant]
  3. ZEMPLAR [Concomitant]
  4. LISINOPRIL [Concomitant]
  5. WARFARIN [Concomitant]
  6. TERAZOSIN [Concomitant]
  7. LUTEIN [Concomitant]
  8. METOPROLOL SR [Concomitant]
  9. GABAPENTIN [Concomitant]
  10. FUROSEMIDE [Concomitant]
  11. ASPIRIN [Concomitant]

REACTIONS (1)
  - Diarrhoea [Not Recovered/Not Resolved]
